FAERS Safety Report 8829619 (Version 1)
Quarter: 2012Q4

REPORT INFORMATION
  Report Type: 
  Country: US (occurrence: US)
  Receive Date: 20121008
  Receipt Date: 20121008
  Transmission Date: 20130627
  Serious: Yes (Hospitalization)
  Sender: FDA-Public Use
  Company Number: US-ROCHE-1131131

PATIENT
  Sex: Male

DRUGS (8)
  1. RITUXAN [Suspect]
     Indication: CHRONIC LYMPHOCYTIC LEUKAEMIA
     Route: 065
  2. DIOVAN [Concomitant]
  3. CARDURA [Concomitant]
  4. AZMACORT [Concomitant]
  5. ANUSOL (BELGIUM) [Concomitant]
  6. METAMUCIL [Concomitant]
  7. BUMEX [Concomitant]
  8. K-DUR [Concomitant]

REACTIONS (2)
  - Gastrointestinal haemorrhage [Recovered/Resolved]
  - Diarrhoea [Recovered/Resolved]
